FAERS Safety Report 7754688-8 (Version None)
Quarter: 2011Q3

REPORT INFORMATION
  Report Type: 
  Country: None (occurrence: None)
  Receive Date: 20110915
  Receipt Date: 20110831
  Transmission Date: 20111222
  Serious: Yes (Death)
  Sender: FDA-Public Use
  Company Number: GB-WATSON-2011-07768

PATIENT
  Sex: Female

DRUGS (4)
  1. VALPROATE SODIUM [Concomitant]
     Indication: EPILEPSY
     Dosage: UNK
     Route: 065
  2. CARBAMAZEPINE [Concomitant]
     Indication: EPILEPSY
     Dosage: UNK
     Route: 065
  3. PHENOBARBITAL TAB [Concomitant]
     Indication: EPILEPSY
     Dosage: UNK
     Route: 065
  4. TOPIRAMATE [Suspect]
     Indication: EPILEPSY
     Dosage: UNK
     Route: 048

REACTIONS (1)
  - DEATH [None]
